FAERS Safety Report 19653301 (Version 1)
Quarter: 2021Q3

REPORT INFORMATION
  Report Type: Report from Study
  Country: None (occurrence: TW)
  Receive Date: 20210804
  Receipt Date: 20210804
  Transmission Date: 20211014
  Serious: Yes (Hospitalization)
  Sender: FDA-Public Use
  Company Number: TW-ABBVIE-21K-153-4016790-00

PATIENT
  Age: 61 Year
  Sex: Female
  Weight: 62.3 kg

DRUGS (3)
  1. HUMIRA [Suspect]
     Active Substance: ADALIMUMAB
     Indication: CROHN^S DISEASE
     Route: 058
     Dates: start: 20190823, end: 20210707
  2. PREDNISOLONE. [Concomitant]
     Active Substance: PREDNISOLONE
     Indication: CROHN^S DISEASE
     Route: 048
     Dates: start: 20210106, end: 20210707
  3. MESALAZINE [Concomitant]
     Active Substance: MESALAMINE
     Indication: CROHN^S DISEASE
     Route: 048
     Dates: start: 20210106, end: 20210707

REACTIONS (6)
  - Rectal stenosis [Unknown]
  - Large intestinal ulcer [Unknown]
  - Feeling cold [Not Recovered/Not Resolved]
  - C-reactive protein increased [Unknown]
  - Pyrexia [Not Recovered/Not Resolved]
  - Large intestinal stenosis [Unknown]

NARRATIVE: CASE EVENT DATE: 20210719
